FAERS Safety Report 9789176 (Version 1)
Quarter: 2013Q4

REPORT INFORMATION
  Report Type: Spontaneous
  Country: US (occurrence: US)
  Receive Date: 20131230
  Receipt Date: 20131230
  Transmission Date: 20140711
  Serious: Yes (Hospitalization)
  Sender: FDA-Public Use
  Company Number: US-GILEAD-2013-0090882

PATIENT
  Age: 52 Year
  Sex: Male

DRUGS (1)
  1. VIREAD [Suspect]
     Indication: HEPATITIS B
     Dosage: UNK

REACTIONS (1)
  - Hernia [Unknown]
